FAERS Safety Report 8270925-8 (Version None)
Quarter: 2012Q2

REPORT INFORMATION
  Report Type: 
  Country: None (occurrence: None)
  Receive Date: 20120410
  Receipt Date: 20120404
  Transmission Date: 20120825
  Serious: Yes (Other)
  Sender: FDA-Public Use
  Company Number: US-PFIZER INC-2012085600

PATIENT
  Sex: Male
  Weight: 106.58 kg

DRUGS (4)
  1. XANAX [Concomitant]
     Dosage: 1 G, DAILY
     Dates: start: 20090101
  2. XANAX [Concomitant]
     Indication: ANXIETY
     Dosage: 6 G, DAILY
     Dates: start: 20070101, end: 20090101
  3. NEURONTIN [Suspect]
     Indication: ANXIETY
     Dosage: 300 MG, 3X/DAY
     Dates: start: 20090101, end: 20120101
  4. BENAZEPRIL [Concomitant]
     Indication: ANXIETY
     Dosage: UNK

REACTIONS (3)
  - LUNG INFECTION [None]
  - ABDOMINAL DISCOMFORT [None]
  - PNEUMONIA [None]
